FAERS Safety Report 20161444 (Version 1)
Quarter: 2021Q4

REPORT INFORMATION
  Report Type: Spontaneous
  Country: US (occurrence: None)
  Receive Date: 20211207
  Receipt Date: 20211207
  Transmission Date: 20220303
  Serious: Yes (Life-Threatening, Other)
  Sender: FDA-Public Use
  Company Number: None

PATIENT
  Age: 22 Year
  Sex: Female
  Weight: 64.35 kg

DRUGS (6)
  1. BUPROPION HYDROCHLORIDE [Suspect]
     Active Substance: BUPROPION HYDROCHLORIDE
     Indication: Major depression
     Dosage: OTHER QUANTITY : 1 TABLET(S);?
     Route: 048
     Dates: start: 20211109, end: 20211207
  2. LEVOTHYROXINE [Concomitant]
     Active Substance: LEVOTHYROXINE
  3. BUPROPION [Concomitant]
     Active Substance: BUPROPION
  4. VITAMINS [Concomitant]
     Active Substance: VITAMINS
  5. GLUTATHIONE [Concomitant]
     Active Substance: GLUTATHIONE
  6. OMEGA 3 [Concomitant]
     Active Substance: CAPSAICIN

REACTIONS (5)
  - Product dispensing error [None]
  - Depression [None]
  - Drug ineffective [None]
  - Suicidal ideation [None]
  - Product substitution issue [None]

NARRATIVE: CASE EVENT DATE: 20211207
